FAERS Safety Report 7237568-6 (Version None)
Quarter: 2011Q1

REPORT INFORMATION
  Report Type: 
  Country: None (occurrence: None)
  Receive Date: 20110113
  Receipt Date: 20101229
  Transmission Date: 20110831
  Serious: Yes (Disabling, Other)
  Sender: FDA-Public Use
  Company Number: 2010P1003681

PATIENT
  Age: 60 Year
  Sex: Female
  Weight: 107.0489 kg

DRUGS (2)
  1. ACTOS [Concomitant]
  2. FENTANYL [Suspect]
     Indication: PAIN
     Dosage: 100 MCG/HR;Q72H;TDER
     Route: 062
     Dates: start: 20080101

REACTIONS (7)
  - BURNS SECOND DEGREE [None]
  - DISORIENTATION [None]
  - PERIORBITAL HAEMATOMA [None]
  - FALL [None]
  - PAIN [None]
  - HEAD INJURY [None]
  - HEADACHE [None]
